FAERS Safety Report 5110440-3 (Version None)
Quarter: 2006Q3

REPORT INFORMATION
  Report Type: 
  Country: None (occurrence: None)
  Receive Date: 20060921
  Receipt Date: 20060911
  Transmission Date: 20061208
  Serious: Yes (Disabling)
  Sender: FDA-Public Use
  Company Number: PHNR2006AU01200

PATIENT
  Age: 49 Year
  Sex: Female

DRUGS (8)
  1. ZOMETA [Suspect]
     Indication: METASTASES TO BONE
     Dosage: 4 MG, QMO
     Dates: start: 20050330
  2. ZOMETA [Suspect]
     Dosage: 4 MG EVERY 6 WEEKS
     Dates: start: 20060323, end: 20060413
  3. CORTICOSTEROIDS [Concomitant]
     Dates: start: 20060301
  4. TAMOXIFEN CITRATE [Concomitant]
  5. EPIRUBICIN [Concomitant]
     Dates: start: 20060302
  6. TAXOTERE [Concomitant]
     Dates: start: 20060302
  7. CYCLOPHOSPHAMIDE [Concomitant]
     Dates: start: 20060302
  8. XELODA [Concomitant]
     Dosage: UNK, UNK
     Dates: start: 20060302

REACTIONS (9)
  - BONE DISORDER [None]
  - DYSAESTHESIA [None]
  - EAR PAIN [None]
  - HYPOAESTHESIA ORAL [None]
  - IMPAIRED HEALING [None]
  - OEDEMA MUCOSAL [None]
  - OSTEONECROSIS [None]
  - PAIN IN JAW [None]
  - SOFT TISSUE INFECTION [None]
